FAERS Safety Report 9103269 (Version 1)
Quarter: 2013Q1

REPORT INFORMATION
  Report Type: Spontaneous
  Country: FR (occurrence: FR)
  Receive Date: 20130219
  Receipt Date: 20130219
  Transmission Date: 20140127
  Serious: Yes (Hospitalization)
  Sender: FDA-Public Use
  Company Number: FR-BAYER-2013-018463

PATIENT
  Age: 66 Year
  Sex: Female

DRUGS (10)
  1. IZILOX [Suspect]
     Dosage: DAILY DOSE 400 MG
     Route: 042
     Dates: start: 20121101, end: 20121106
  2. VANCOMYCIN [Suspect]
     Dosage: UNK
     Route: 042
     Dates: start: 20121102, end: 20121109
  3. BACTRIM [Suspect]
     Dosage: DAILY DOSE 1200 MG
     Route: 042
     Dates: start: 20121101, end: 20121106
  4. ZYVOXID [Concomitant]
     Dosage: 600 MG, 12 HOURLY
     Dates: start: 20121109, end: 20121114
  5. AMIKACINE [Concomitant]
     Dosage: DAILY DOSE 1000 MG
     Dates: start: 20121102, end: 20121107
  6. PANTOPRAZOLE SODIUM [Concomitant]
     Dosage: UNK
     Route: 042
     Dates: start: 20121030, end: 20121109
  7. TERBUTALINE SULFATE [Concomitant]
     Dosage: UNK
     Route: 042
     Dates: start: 20121030, end: 20121103
  8. TRIMEBUTINE [Concomitant]
     Dosage: UNK
     Route: 042
     Dates: start: 20121030, end: 20121111
  9. LOVENOX [Concomitant]
     Dosage: UNK
     Route: 058
     Dates: start: 20121030, end: 20121114
  10. IPRATROPIUM BROMIDE [Concomitant]
     Dosage: UNK
     Route: 055
     Dates: start: 20121030, end: 20121103

REACTIONS (1)
  - Drug reaction with eosinophilia and systemic symptoms [Recovered/Resolved]
